FAERS Safety Report 22180972 (Version 1)
Quarter: 2023Q2

REPORT INFORMATION
  Report Type: Spontaneous
  Country: ES (occurrence: None)
  Receive Date: 20230406
  Receipt Date: 20230406
  Transmission Date: 20230722
  Serious: Yes (Life-Threatening, Hospitalization)
  Sender: FDA-Public Use
  Company Number: ES-ROCHE-3325513

PATIENT
  Age: 18 Year
  Sex: Male

DRUGS (10)
  1. RIVOTRIL [Suspect]
     Active Substance: CLONAZEPAM
     Indication: Substance use
     Dosage: INGESTED 8 PILLS OF RIVOTRIL (0.5MG)
     Route: 048
     Dates: start: 20230307, end: 20230307
  2. RIVOTRIL [Suspect]
     Active Substance: CLONAZEPAM
     Indication: Substance use
     Dosage: 1 DRINKABLE AMPOULE
     Route: 048
  3. GABAPENTIN [Suspect]
     Active Substance: GABAPENTIN
     Indication: Substance use
     Dosage: A PILL OF GABAPENTIN
     Route: 048
     Dates: start: 20230307, end: 20230307
  4. PREGABALIN [Suspect]
     Active Substance: PREGABALIN
     Indication: Substance use
     Route: 045
     Dates: start: 20230307, end: 20230307
  5. PREGABALIN [Suspect]
     Active Substance: PREGABALIN
     Route: 045
  6. COCAINE [Suspect]
     Active Substance: COCAINE
     Indication: Product used for unknown indication
     Route: 065
  7. OLANZAPINE [Suspect]
     Active Substance: OLANZAPINE
     Indication: Product used for unknown indication
     Route: 065
  8. CARIPRAZINE [Suspect]
     Active Substance: CARIPRAZINE
     Indication: Product used for unknown indication
     Route: 065
  9. MIDOMAFETAMINE [Concomitant]
     Active Substance: MIDOMAFETAMINE
  10. QUETIAPINE [Concomitant]
     Active Substance: QUETIAPINE

REACTIONS (3)
  - Respiratory acidosis [Recovered/Resolved]
  - Depressed level of consciousness [Recovered/Resolved]
  - Intentional overdose [Unknown]

NARRATIVE: CASE EVENT DATE: 20230307
